FAERS Safety Report 15006446 (Version 1)
Quarter: 2018Q2

REPORT INFORMATION
  Report Type: Spontaneous
  Country: US (occurrence: US)
  Receive Date: 20180525
  Receipt Date: 20180525
  Transmission Date: 20180711
  Serious: Yes (Other)
  Sender: FDA-Public Use
  Company Number: None

PATIENT
  Age: 64 Year
  Sex: Female
  Weight: 69.75 kg

DRUGS (7)
  1. MICONAZOLE 1 [Suspect]
     Active Substance: MICONAZOLE NITRATE
     Indication: VULVOVAGINAL MYCOTIC INFECTION
     Dosage: ?          QUANTITY:1 SUPPOSITORY(IES);?
     Route: 067
     Dates: start: 20180524, end: 20180524
  2. METFORMIN [Concomitant]
     Active Substance: METFORMIN HYDROCHLORIDE
  3. RANITIDINE. [Concomitant]
     Active Substance: RANITIDINE
  4. OMEPRAZOLE. [Concomitant]
     Active Substance: OMEPRAZOLE
  5. PRAVASTATIN. [Concomitant]
     Active Substance: PRAVASTATIN
  6. GLIPIZIDE. [Concomitant]
     Active Substance: GLIPIZIDE
  7. ESTRADIOL. [Concomitant]
     Active Substance: ESTRADIOL

REACTIONS (4)
  - Application site pain [None]
  - Application site swelling [None]
  - Application site pruritus [None]
  - Chemical burn [None]

NARRATIVE: CASE EVENT DATE: 20180524
